FAERS Safety Report 12270657 (Version 1)
Quarter: 2016Q2

REPORT INFORMATION
  Report Type: Spontaneous
  Country: US (occurrence: None)
  Receive Date: 20160414
  Receipt Date: 20160414
  Transmission Date: 20160815
  Serious: No
  Sender: FDA-Public Use
  Company Number: None

PATIENT
  Age: 56 Year
  Sex: Female
  Weight: 68.04 kg

DRUGS (12)
  1. CLAIRITIN-D 24HR (LORATADINE 10 MG, PSEUDOEPHEDRINE SULFATE 240 MG) [Concomitant]
  2. BEPREVE [Suspect]
     Active Substance: BEPOTASTINE BESILATE
     Indication: EYE IRRITATION
     Route: 047
     Dates: start: 20160405, end: 20160406
  3. HYDROXYCHLOROQUINE SULFATE. [Concomitant]
     Active Substance: HYDROXYCHLOROQUINE SULFATE
  4. VENLAFAXIN HCL ER [Concomitant]
  5. MONTELUKAST SODIUM. [Concomitant]
     Active Substance: MONTELUKAST SODIUM
  6. COD LIVER OIL [Concomitant]
     Active Substance: COD LIVER OIL
  7. LEVOTHYROXINE SODIUM. [Concomitant]
     Active Substance: LEVOTHYROXINE SODIUM
  8. FLONASE [Concomitant]
     Active Substance: FLUTICASONE PROPIONATE
  9. CANDIDA FX [Concomitant]
  10. TURMERIC [Concomitant]
     Active Substance: TURMERIC
  11. COENZYME Q10 [Concomitant]
     Active Substance: UBIDECARENONE
  12. BEPREVE [Suspect]
     Active Substance: BEPOTASTINE BESILATE
     Indication: SEASONAL ALLERGY
     Route: 047
     Dates: start: 20160405, end: 20160406

REACTIONS (7)
  - Instillation site pain [None]
  - Cough [None]
  - Eyelid exfoliation [None]
  - Instillation site pruritus [None]
  - Drug hypersensitivity [None]
  - Erythema [None]
  - Oropharyngeal pain [None]

NARRATIVE: CASE EVENT DATE: 20160406
